FAERS Safety Report 6139531-5 (Version None)
Quarter: 2009Q1

REPORT INFORMATION
  Report Type: 
  Country: None (occurrence: None)
  Receive Date: 20090327
  Receipt Date: 20080714
  Transmission Date: 20090719
  Serious: Yes (Other)
  Sender: FDA-Public Use
  Company Number: IMP_03798_2008

PATIENT
  Age: 40 Year
  Sex: Female
  Weight: 52.1637 kg

DRUGS (2)
  1. BUPROPION HYDROCHLORIDE [Suspect]
     Indication: DEPRESSION
     Dosage: 150 MG BID ORAL
     Route: 048
     Dates: start: 20060406, end: 20071107
  2. CLONAZEPAM [Concomitant]

REACTIONS (9)
  - DEPRESSION [None]
  - DIZZINESS [None]
  - DRUG INEFFECTIVE [None]
  - HYPOMANIA [None]
  - NAUSEA [None]
  - PRODUCT QUALITY ISSUE [None]
  - SUICIDAL IDEATION [None]
  - TACHYPHRENIA [None]
  - WEIGHT INCREASED [None]
